FAERS Safety Report 6663769-1 (Version None)
Quarter: 2010Q1

REPORT INFORMATION
  Report Type: 
  Country: None (occurrence: None)
  Receive Date: 20100331
  Receipt Date: 20100331
  Transmission Date: 20100710
  Serious: No
  Sender: FDA-Public Use
  Company Number: None

PATIENT
  Age: 53 Year
  Sex: Female
  Weight: 70.3075 kg

DRUGS (2)
  1. PROPYLTHIOURACIL [Suspect]
     Indication: BASEDOW'S DISEASE
     Dosage: 2 PILLS 3 TIMES A DAY PO 1/2 PILL 1 TIME A DAY PO
     Route: 048
     Dates: start: 20010610, end: 20050418
  2. BENADRYL [Concomitant]

REACTIONS (8)
  - BURNING SENSATION [None]
  - ERYTHEMA [None]
  - IMPAIRED WORK ABILITY [None]
  - LYMPHADENOPATHY [None]
  - PAROTID GLAND ENLARGEMENT [None]
  - PRURITUS [None]
  - SKIN DISCOLOURATION [None]
  - SWELLING [None]
